FAERS Safety Report 4886538-1 (Version None)
Quarter: 2005Q4

REPORT INFORMATION
  Report Type: 
  Country: None (occurrence: None)
  Receive Date: 20051220
  Receipt Date: 20050429
  Transmission Date: 20060501
  Serious: Yes (Death)
  Sender: FDA-Public Use
  Company Number: HQWYE464302MAY05

PATIENT
  Age: 62 Year
  Sex: Female
  Weight: 81.72 kg

DRUGS (5)
  1. EFFEXOR XR [Suspect]
     Indication: DEPRESSION
     Dosage: OVERDOSE AMOUNT UNKNOWN, ORAL
     Route: 048
     Dates: start: 20041219, end: 20041219
  2. XANAX [Concomitant]
  3. BENADRYL [Concomitant]
  4. IBUPROFEN [Concomitant]
  5. ACETAMINOPHEN [Concomitant]

REACTIONS (1)
  - OVERDOSE [None]
